FAERS Safety Report 9006185 (Version 1)
Quarter: 2013Q1

REPORT INFORMATION
  Report Type: Spontaneous
  Country: US (occurrence: US)
  Receive Date: 20130110
  Receipt Date: 20130110
  Transmission Date: 20140127
  Serious: Yes (Other)
  Sender: FDA-Public Use
  Company Number: US-009507513-0907USA03584

PATIENT
  Age: 18 Month
  Sex: Male
  Weight: 27.67 kg

DRUGS (2)
  1. SINGULAIR [Suspect]
     Indication: ASTHMA
     Dosage: 1 DF, QD
     Route: 048
     Dates: end: 2007
  2. SINGULAIR [Suspect]
     Indication: MULTIPLE ALLERGIES

REACTIONS (16)
  - Abnormal behaviour [Not Recovered/Not Resolved]
  - Affective disorder [Unknown]
  - Aggression [Unknown]
  - Anger [Unknown]
  - Asthma [Unknown]
  - Cerebral disorder [Unknown]
  - Constipation [Unknown]
  - Ill-defined disorder [Unknown]
  - Insomnia [Unknown]
  - Mental disorder [Unknown]
  - Nightmare [Unknown]
  - Personality change [Unknown]
  - Pruritus [Unknown]
  - Self-injurious ideation [Unknown]
  - Urticaria [Unknown]
  - Violence-related symptom [Unknown]
